FAERS Safety Report 14882206 (Version 1)
Quarter: 2018Q2

REPORT INFORMATION
  Report Type: Spontaneous
  Country: GB (occurrence: GB)
  Receive Date: 20180511
  Receipt Date: 20180511
  Transmission Date: 20180711
  Serious: Yes (Other)
  Sender: FDA-Public Use
  Company Number: GB-PFIZER INC-2018185531

PATIENT
  Age: 71 Year
  Sex: Female
  Weight: 84 kg

DRUGS (12)
  1. BUDESONIDE. [Concomitant]
     Active Substance: BUDESONIDE
     Dosage: 4 DF, 1X/DAY (PUFFS)
     Route: 055
     Dates: start: 20140721
  2. OMEPRAZOLE. [Concomitant]
     Active Substance: OMEPRAZOLE
     Dosage: 1 DF, 1X/DAY (MORNING, CAN USE IN EVENING)
     Dates: start: 20170324, end: 20180323
  3. VENTOLIN [Concomitant]
     Active Substance: ALBUTEROL SULFATE
     Dosage: UNK (1 OR 2 PUFFS UP TO 4 TIMES A DAY)
     Route: 055
     Dates: start: 20150720
  4. ATORVASTATIN CALCIUM. [Suspect]
     Active Substance: ATORVASTATIN CALCIUM
     Dosage: UNK
     Dates: start: 20171220
  5. THEICAL D3 [Concomitant]
     Dosage: 1 DF, 1X/DAY
     Dates: start: 20161010
  6. MATRIFEN [Concomitant]
     Active Substance: FENTANYL
     Indication: PAIN
     Dosage: 1 DF, CYCLIC (EVERY 72 HOURS)
     Route: 062
     Dates: start: 20171220, end: 20180109
  7. FENCINO [Concomitant]
     Indication: PAIN
     Dosage: 1 DF, CYCLIC (EVERY 72 HOURS)
     Route: 062
     Dates: start: 20180109
  8. ACIDEX [Concomitant]
     Active Substance: CALCIUM CARBONATE\SODIUM ALGINATE\SODIUM BICARBONATE
     Dosage: UNK UNK, AS NEEDED (1 OR 2 TEASPOONS UP TO 4 HOURLY)
     Dates: start: 20130304
  9. COSMOCOL [Concomitant]
     Indication: CONSTIPATION
     Dosage: 1 DF, 1X/DAY
     Dates: start: 20140912, end: 20180323
  10. ALGESAL [Concomitant]
     Active Substance: DIETHYLAMINE SALICYLATE
     Indication: OSTEOARTHRITIS
     Dosage: 1 DF, AS NEEDED (3 TIMES A DAY)
     Dates: start: 20130304
  11. PARACETAMOL [Concomitant]
     Active Substance: ACETAMINOPHEN
     Dosage: 2 DF, AS NEEDED (4 TIMES DAILY)
     Dates: start: 20120621
  12. BENDROFLUMETHIAZIDE [Concomitant]
     Active Substance: BENDROFLUMETHIAZIDE
     Indication: JOINT SWELLING
     Dosage: 1 DF, 1X/DAY (MORNING)
     Dates: start: 20171220

REACTIONS (3)
  - Myalgia [Unknown]
  - Malaise [Unknown]
  - Sleep disorder [Recovered/Resolved]

NARRATIVE: CASE EVENT DATE: 20180323
